FAERS Safety Report 12636750 (Version 2)
Quarter: 2016Q4

REPORT INFORMATION
  Report Type: Spontaneous
  Country: JP (occurrence: JP)
  Receive Date: 20160809
  Receipt Date: 20161222
  Transmission Date: 20170207
  Serious: Yes (Hospitalization)
  Sender: FDA-Public Use
  Company Number: JP-EISAI MEDICAL RESEARCH-EC-2016-018355

PATIENT
  Age: 75 Year
  Sex: Male
  Weight: 50 kg

DRUGS (14)
  1. MYSER [Concomitant]
     Active Substance: DIFLUPREDNATE
     Indication: PROPHYLAXIS
     Dosage: UNKNOWN
     Route: 048
  2. LIOTHYRONINE SODIUM. [Concomitant]
     Active Substance: LIOTHYRONINE SODIUM
     Indication: THYROID DISORDER
     Dosage: UNKNOWN
     Route: 065
  3. PASTARON [Concomitant]
     Active Substance: UREA
     Indication: PROPHYLAXIS
     Dosage: UNKNOWN
     Route: 048
  4. HIRUDOID [Concomitant]
     Active Substance: GLYCOSAMINOGLYCANS
     Indication: PROPHYLAXIS
     Dosage: UNKNOWN
     Route: 048
  5. LEVOTHYROXINE. [Concomitant]
     Active Substance: LEVOTHYROXINE
     Indication: THYROID DISORDER
     Dosage: UNKNOWN
     Route: 065
  6. AMLODIN [Concomitant]
     Active Substance: AMLODIPINE BESYLATE
     Indication: PROPHYLAXIS
     Dosage: UNKNOWN
     Route: 048
  7. LENVIMA [Suspect]
     Active Substance: LENVATINIB
     Indication: PAPILLARY THYROID CANCER
     Route: 048
     Dates: start: 20150527, end: 20151007
  8. LENVIMA [Suspect]
     Active Substance: LENVATINIB
     Route: 048
     Dates: start: 20151225, end: 20160412
  9. LENVIMA [Suspect]
     Active Substance: LENVATINIB
     Route: 048
     Dates: start: 20160615, end: 20160708
  10. ROCALTROL [Concomitant]
     Active Substance: CALCITRIOL
     Indication: PROPHYLAXIS
     Dosage: UNKNOWN
     Route: 048
  11. VALSARTAN. [Concomitant]
     Active Substance: VALSARTAN
     Indication: PROPHYLAXIS
     Dosage: UNKNOWN
     Route: 048
  12. LENVIMA [Suspect]
     Active Substance: LENVATINIB
     Route: 048
     Dates: start: 20151028, end: 20151209
  13. BESOFTEN [Concomitant]
     Active Substance: SODIUM ALGINATE
     Indication: PROPHYLAXIS
     Dosage: UNKNOWN
     Route: 048
  14. OLMETEC [Concomitant]
     Active Substance: OLMESARTAN MEDOXOMIL
     Indication: PROPHYLAXIS
     Dosage: UNKNOWN
     Route: 048

REACTIONS (2)
  - Pneumonia aspiration [Unknown]
  - Palmar-plantar erythrodysaesthesia syndrome [Recovering/Resolving]

NARRATIVE: CASE EVENT DATE: 20160625
